FAERS Safety Report 23501548 (Version 1)
Quarter: 2024Q1

REPORT INFORMATION
  Report Type: Spontaneous
  Country: US (occurrence: None)
  Receive Date: 20240208
  Receipt Date: 20240208
  Transmission Date: 20240409
  Serious: Yes (Death)
  Sender: FDA-Public Use
  Company Number: None

PATIENT
  Age: 67 Year
  Sex: Female

DRUGS (3)
  1. DALFAMPRIDINE [Suspect]
     Active Substance: DALFAMPRIDINE
     Indication: Multiple sclerosis
     Dosage: FREQUENCY : EVERY 12 HOURS;?
     Route: 048
  2. PLEGRIDY [Concomitant]
     Active Substance: PEGINTERFERON BETA-1A
  3. PLEGRIDY [Concomitant]
     Active Substance: PEGINTERFERON BETA-1A

REACTIONS (1)
  - Death [None]

NARRATIVE: CASE EVENT DATE: 20240205
